FAERS Safety Report 11692397 (Version 3)
Quarter: 2016Q1

REPORT INFORMATION
  Report Type: Report from Study
  Country: BR (occurrence: BR)
  Receive Date: 20151103
  Receipt Date: 20160226
  Transmission Date: 20160525
  Serious: Yes (Hospitalization)
  Sender: FDA-Public Use
  Company Number: BR-ABBVIE-15K-020-1491852-00

PATIENT
  Age: 30 Year
  Sex: Female
  Weight: 62 kg

DRUGS (4)
  1. HUMIRA [Suspect]
     Active Substance: ADALIMUMAB
     Indication: CROHN^S DISEASE
     Dosage: LOADING DOSE
     Route: 058
     Dates: start: 20130101, end: 20130101
  2. HUMIRA [Suspect]
     Active Substance: ADALIMUMAB
     Route: 058
  3. HUMIRA [Suspect]
     Active Substance: ADALIMUMAB
     Dosage: LOADING DOSE
     Route: 058
  4. HUMIRA [Suspect]
     Active Substance: ADALIMUMAB
     Route: 058
     Dates: end: 201407

REACTIONS (6)
  - Blood albumin decreased [Not Recovered/Not Resolved]
  - Protein total abnormal [Unknown]
  - Red blood cell count decreased [Unknown]
  - Blood disorder [Unknown]
  - Crohn^s disease [Not Recovered/Not Resolved]
  - Generalised oedema [Recovering/Resolving]

NARRATIVE: CASE EVENT DATE: 20151009
